FAERS Safety Report 4975957-0 (Version None)
Quarter: 2006Q2

REPORT INFORMATION
  Report Type: 
  Country: None (occurrence: None)
  Receive Date: 20060418
  Receipt Date: 20051221
  Transmission Date: 20061013
  Serious: Yes (Death)
  Sender: FDA-Public Use
  Company Number: US-MERCK-0512USA03443

PATIENT
  Age: 69 Year
  Sex: Female
  Weight: 97 kg

DRUGS (38)
  1. VIOXX [Suspect]
     Indication: ARTHRITIS
     Route: 048
     Dates: start: 20010213, end: 20031201
  2. [THERAPY UNSPECIFIED] [Concomitant]
     Route: 065
  3. TRIMOX [Concomitant]
     Route: 065
  4. CEPHALEXIN [Concomitant]
     Route: 065
  5. ZITHROMAX [Concomitant]
     Route: 065
  6. QUININE SULFATE [Concomitant]
     Route: 065
  7. DOXYCYCLINE [Concomitant]
     Route: 065
  8. LEVAQUIN [Concomitant]
     Route: 065
  9. CIPRO [Concomitant]
     Route: 065
  10. SYNTHROID [Concomitant]
     Route: 065
  11. PAXIL [Concomitant]
     Route: 065
  12. BACLOFEN [Concomitant]
     Route: 065
  13. TEMAZEPAM [Concomitant]
     Route: 065
  14. CYCLOBENZAPRINE HYDROCHLORIDE [Concomitant]
     Route: 065
  15. AMITRIPTYLINE HYDROCHLORIDE [Concomitant]
     Route: 065
  16. NEURONTIN [Concomitant]
     Route: 065
  17. QUINIDINE [Concomitant]
     Route: 065
  18. KETOROLAC TROMETHAMINE [Concomitant]
     Route: 065
  19. NIZORAL [Concomitant]
     Route: 065
  20. RESAID [Concomitant]
     Route: 065
  21. VISICOL [Concomitant]
     Route: 065
  22. TORADOL [Concomitant]
     Route: 065
  23. FUROSEMIDE [Concomitant]
     Route: 065
  24. GUAIFENESIN [Concomitant]
     Route: 065
  25. PREDNISONE [Concomitant]
     Route: 065
  26. MEPERIDINE HYDROCHLORIDE [Concomitant]
     Route: 065
  27. NORTRIPTYLINE [Concomitant]
     Route: 065
  28. PROPOXYPHENE HYDROCHLORIDE [Concomitant]
     Route: 065
  29. METHADONE HYDROCHLORIDE [Concomitant]
     Route: 065
  30. HYDROCODONE BITARTRATE [Concomitant]
     Route: 065
  31. OXYCONTIN [Concomitant]
     Route: 065
  32. DIAZEPAM [Concomitant]
     Route: 065
  33. DARVON [Concomitant]
     Route: 065
  34. MORPHINE [Concomitant]
     Route: 065
  35. CLONAZEPAM [Concomitant]
     Route: 065
  36. PLENDIL [Concomitant]
     Route: 065
  37. ACTIQ [Concomitant]
     Route: 065
  38. NORVASC [Concomitant]
     Route: 065
     Dates: start: 20000101, end: 20031201

REACTIONS (5)
  - GASTROOESOPHAGEAL REFLUX DISEASE [None]
  - HYPERLIPIDAEMIA [None]
  - MYOCARDIAL INFARCTION [None]
  - OSTEITIS DEFORMANS [None]
  - PERIPHERAL VASCULAR DISORDER [None]
